FAERS Safety Report 22266036 (Version 1)
Quarter: 2023Q2

REPORT INFORMATION
  Report Type: Spontaneous
  Country: JP (occurrence: JP)
  Receive Date: 20230428
  Receipt Date: 20230428
  Transmission Date: 20230721
  Serious: Yes (Other)
  Sender: FDA-Public Use
  Company Number: JP-BAYER-2023A050917

PATIENT
  Age: 54 Year
  Sex: Male

DRUGS (1)
  1. IOPAMIRON [Suspect]
     Active Substance: IOPAMIDOL
     Indication: Catheterisation cardiac
     Dosage: UNK, SINGLE
     Dates: start: 20230411, end: 20230411

REACTIONS (4)
  - Depressed level of consciousness [Recovered/Resolved]
  - Physical deconditioning [Recovering/Resolving]
  - Yawning [Recovering/Resolving]
  - Blood pressure decreased [Recovered/Resolved]

NARRATIVE: CASE EVENT DATE: 20230414
